FAERS Safety Report 19900737 (Version 1)
Quarter: 2021Q3

REPORT INFORMATION
  Report Type: Report from Study
  Country: JP (occurrence: JP)
  Receive Date: 20210929
  Receipt Date: 20210929
  Transmission Date: 20211014
  Serious: Yes (Other)
  Sender: FDA-Public Use
  Company Number: JP-EMD SERONO-9267682

PATIENT
  Age: 75 Year

DRUGS (2)
  1. BAVENCIO [Suspect]
     Active Substance: AVELUMAB
     Indication: TRANSITIONAL CELL CARCINOMA
     Route: 041
  2. BAVENCIO [Suspect]
     Active Substance: AVELUMAB
     Dosage: DOSE REDUCED
     Route: 041

REACTIONS (2)
  - Pyrexia [Recovering/Resolving]
  - Respiratory distress [Recovering/Resolving]
